FAERS Safety Report 13318953 (Version 1)
Quarter: 2017Q1

REPORT INFORMATION
  Report Type: Spontaneous
  Country: BE (occurrence: BE)
  Receive Date: 20170309
  Receipt Date: 20170309
  Transmission Date: 20170428
  Serious: Yes (Death, Hospitalization)
  Sender: FDA-Public Use
  Company Number: BE-ASTRAZENECA-2017SE23727

PATIENT
  Age: 71 Year
  Sex: Female

DRUGS (8)
  1. MOXONIDINE [Concomitant]
     Active Substance: MOXONIDINE
  2. OLMESARTAN [Concomitant]
     Active Substance: OLMESARTAN
  3. ROSUVASTATIN. [Suspect]
     Active Substance: ROSUVASTATIN
     Route: 048
  4. ATENOLOL. [Suspect]
     Active Substance: ATENOLOL
     Route: 048
  5. ACENOCOUMAROL [Concomitant]
     Active Substance: ACENOCOUMAROL
  6. FLECAINIDE [Concomitant]
     Active Substance: FLECAINIDE
  7. AMLODIPINE [Concomitant]
     Active Substance: AMLODIPINE BESYLATE
  8. INSULIN [Concomitant]
     Active Substance: INSULIN NOS
     Dosage: 2 DAILY INJECTION OF PREMIXED INSULIN BIASPART 30

REACTIONS (3)
  - Cardiac neoplasm unspecified [Fatal]
  - Atrial fibrillation [Fatal]
  - Oedema peripheral [Fatal]
